FAERS Safety Report 6826441-0 (Version None)
Quarter: 2010Q3

REPORT INFORMATION
  Report Type: 
  Country: None (occurrence: None)
  Receive Date: 20100709
  Receipt Date: 20100630
  Transmission Date: 20110219
  Serious: Yes (Hospitalization, Other)
  Sender: FDA-Public Use
  Company Number: BE-JNJFOC-20100700091

PATIENT
  Age: 47 Year
  Sex: Female

DRUGS (4)
  1. RISPERDAL CONSTA [Suspect]
     Indication: PRODUCT USED FOR UNKNOWN INDICATION
     Route: 030
  2. RISPERDAL CONSTA [Suspect]
     Route: 030
  3. CARBAMAZEPINE [Concomitant]
     Indication: MOOD SWINGS
     Route: 065
  4. VENTOLIN [Concomitant]
     Route: 065

REACTIONS (4)
  - CONVULSION [None]
  - INCONTINENCE [None]
  - OVERDOSE [None]
  - RESPIRATORY ARREST [None]
